FAERS Safety Report 6819314-0 (Version None)
Quarter: 2010Q3

REPORT INFORMATION
  Report Type: 
  Country: None (occurrence: None)
  Receive Date: 20100707
  Receipt Date: 20100630
  Transmission Date: 20110219
  Serious: Yes (Hospitalization)
  Sender: FDA-Public Use
  Company Number: JP-BAYER-201012683BYL

PATIENT
  Age: 65 Year
  Sex: Male
  Weight: 69 kg

DRUGS (3)
  1. NEXAVAR [Suspect]
     Indication: HEPATIC NEOPLASM MALIGNANT
     Dosage: TOTAL DAILY DOSE: 800 MG  UNIT DOSE: 200 MG
     Route: 048
     Dates: start: 20100518, end: 20100529
  2. BASEN [Concomitant]
     Indication: DIABETES MELLITUS
     Dosage: SINCE BEFORE ADMINISTRATION
     Route: 048
  3. NORVASC [Concomitant]
     Indication: HYPERTENSION
     Dosage: SINCE BEFORE ADMINISTRATION
     Route: 048

REACTIONS (1)
  - CEREBRAL INFARCTION [None]
